FAERS Safety Report 9686309 (Version 1)
Quarter: 2013Q4

REPORT INFORMATION
  Report Type: Spontaneous
  Country: SE (occurrence: None)
  Receive Date: 20131108
  Receipt Date: 20131108
  Transmission Date: 20140711
  Serious: Yes (Hospitalization)
  Sender: FDA-Public Use
  Company Number: 2013309826

PATIENT
  Age: 89 Year
  Sex: Female

DRUGS (13)
  1. FRAGMIN [Suspect]
     Indication: DEEP VEIN THROMBOSIS
     Dosage: 2 DF, DAILY
     Dates: start: 20130722
  2. KALCIPOS [Concomitant]
     Dates: end: 20130720
  3. ALENAT (ALENDRONATE SODIUM) [Concomitant]
  4. OMEPRAZOL (OMEPRAZOLE) [Concomitant]
  5. BISOPROLOL [Concomitant]
  6. TIMOSAN (TIMOLOL MALEATE) [Concomitant]
  7. AMLODIPIN ACCORD (AMLODIPINE) [Concomitant]
  8. PANODIL (PARACETAMOL) [Concomitant]
  9. IMUREL (AZATHIOPRINE) [Concomitant]
  10. IMDUR (ISOSORBIDE MONONITRATE) [Concomitant]
  11. IMOVANE (ZOPICLONE) [Concomitant]
  12. SPIRONOLACTONE [Concomitant]
  13. GLYTRIN (GLYCERYL TRINITRATE) [Concomitant]

REACTIONS (3)
  - Epistaxis [None]
  - Hypercalcaemia [None]
  - Myalgia [None]
